FAERS Safety Report 21904346 (Version 1)
Quarter: 2023Q1

REPORT INFORMATION
  Report Type: Spontaneous
  Country: US (occurrence: None)
  Receive Date: 20230124
  Receipt Date: 20230124
  Transmission Date: 20230418
  Serious: Yes (Hospitalization)
  Sender: FDA-Public Use
  Company Number: None

PATIENT
  Age: 70 Year
  Sex: Male
  Weight: 82 kg

DRUGS (2)
  1. NIVOLUMAB [Suspect]
     Active Substance: NIVOLUMAB
     Indication: Immune system disorder
     Dosage: FREQUENCY : ONCE;?
     Route: 042
     Dates: start: 20220915, end: 20221024
  2. IPILIMUMAB [Suspect]
     Active Substance: IPILIMUMAB
     Dosage: FREQUENCY : ONCE;?
     Route: 042
     Dates: start: 20221006, end: 20221024

REACTIONS (5)
  - Insomnia [None]
  - Diarrhoea [None]
  - Acute respiratory failure [None]
  - Pneumonia [None]
  - Cardiac failure [None]

NARRATIVE: CASE EVENT DATE: 20221207
